FAERS Safety Report 8971264 (Version 3)
Quarter: 2013Q1

REPORT INFORMATION
  Report Type: Spontaneous
  Country: JP (occurrence: JP)
  Receive Date: 20121217
  Receipt Date: 20130219
  Transmission Date: 20140127
  Serious: Yes (Other)
  Sender: FDA-Public Use
  Company Number: JP-GLAXOSMITHKLINE-B0852527A

PATIENT
  Age: 24 None
  Sex: Male

DRUGS (5)
  1. LAMICTAL [Suspect]
     Indication: BIPOLAR DISORDER
     Dosage: 25MG PER DAY
     Route: 048
     Dates: start: 20120731, end: 20120821
  2. SEROQUEL [Concomitant]
     Dosage: 25MG TWICE PER DAY
     Route: 048
  3. CYMBALTA [Concomitant]
     Dosage: 40MG PER DAY
     Route: 048
  4. DOGMATYL [Concomitant]
     Route: 065
  5. SOLANAX [Concomitant]
     Dosage: .8MG PER DAY
     Route: 048

REACTIONS (4)
  - Corneal erosion [Recovering/Resolving]
  - Corneal disorder [Recovering/Resolving]
  - Visual acuity reduced transiently [Unknown]
  - Abnormal sensation in eye [Unknown]
